FAERS Safety Report 6143315-1 (Version None)
Quarter: 2009Q2

REPORT INFORMATION
  Report Type: 
  Country: None (occurrence: None)
  Receive Date: 20090403
  Receipt Date: 20090330
  Transmission Date: 20091009
  Serious: Yes (Hospitalization)
  Sender: FDA-Public Use
  Company Number: B0553262A

PATIENT
  Sex: Female

DRUGS (19)
  1. SERETIDE [Suspect]
     Indication: ASTHMA
     Dosage: 2PUFF TWICE PER DAY
     Route: 055
  2. VENTOLIN [Suspect]
     Indication: ASTHMA
     Dosage: 100MCG AS REQUIRED
     Route: 055
  3. UNKNOWN [Suspect]
     Indication: BLOOD PRESSURE
     Dosage: 200MG PER DAY
     Route: 048
  4. AMITRIPTYLINE HCL [Suspect]
     Indication: PAIN
     Dosage: 25MG PER DAY
     Route: 048
  5. ATENOLOL [Suspect]
     Indication: BLOOD PRESSURE
     Dosage: 60MG PER DAY
     Route: 048
  6. ATORVASTATIN [Suspect]
     Dosage: 20MG PER DAY
     Route: 048
  7. CALCICHEW [Suspect]
     Indication: DRUG USE FOR UNKNOWN INDICATION
     Dosage: 2TAB TWICE PER DAY
     Route: 048
  8. ACETAMINOPHEN W/ CODEINE [Suspect]
     Indication: DRUG USE FOR UNKNOWN INDICATION
     Dosage: 2TAB FOUR TIMES PER DAY
     Route: 048
  9. GABAPENTIN [Suspect]
     Indication: DRUG USE FOR UNKNOWN INDICATION
     Dosage: 300MG THREE TIMES PER DAY
     Route: 048
  10. GAVISCON [Suspect]
     Dosage: 20ML THREE TIMES PER DAY
     Route: 048
  11. NITROGLYCERIN [Suspect]
     Indication: CHEST PAIN
     Dosage: 1SPR AS REQUIRED
     Route: 048
  12. ISOTARD [Suspect]
     Indication: DRUG USE FOR UNKNOWN INDICATION
     Dosage: 60MG PER DAY
     Route: 048
  13. LANSOPRAZOLE [Suspect]
  14. UNKNOWN [Suspect]
     Indication: DRUG USE FOR UNKNOWN INDICATION
     Dosage: 10MG TWICE PER DAY
     Route: 048
  15. ALENDRONIC ACID [Suspect]
     Indication: DRUG USE FOR UNKNOWN INDICATION
     Route: 048
  16. MORPHINE [Suspect]
     Indication: DRUG USE FOR UNKNOWN INDICATION
     Route: 062
  17. TIOTROPIUM [Suspect]
     Indication: CHRONIC OBSTRUCTIVE PULMONARY DISEASE
     Dosage: 18MG PER DAY
     Route: 055
  18. PREDNISOLONE [Suspect]
     Indication: ARTHRITIS
     Dosage: 2.5MG PER DAY
     Route: 048
  19. ASPIRIN [Suspect]
     Indication: VENIPUNCTURE
     Dosage: 75MG PER DAY
     Route: 048

REACTIONS (8)
  - DYSPHONIA [None]
  - DYSPNOEA [None]
  - FALL [None]
  - FEELING ABNORMAL [None]
  - OEDEMA PERIPHERAL [None]
  - OROPHARYNGEAL PAIN [None]
  - PNEUMONIA [None]
  - RENAL INJURY [None]
